FAERS Safety Report 16928953 (Version 2)
Quarter: 2019Q4

REPORT INFORMATION
  Report Type: Spontaneous
  Country: US (occurrence: US)
  Receive Date: 20191017
  Receipt Date: 20191118
  Transmission Date: 20200122
  Serious: No
  Sender: FDA-Public Use
  Company Number: US-009507513-1910USA010525

PATIENT
  Sex: Female
  Weight: 62.78 kg

DRUGS (5)
  1. TIZANIDINE HYDROCHLORIDE. [Suspect]
     Active Substance: TIZANIDINE HYDROCHLORIDE
     Dosage: COUPLE OF TIMES A WEEK
  2. CYMBALTA [Suspect]
     Active Substance: DULOXETINE HYDROCHLORIDE
     Dosage: DAILY
  3. TRAZODONE HYDROCHLORIDE. [Suspect]
     Active Substance: TRAZODONE HYDROCHLORIDE
     Dosage: AT NIGHT
  4. REMERON [Suspect]
     Active Substance: MIRTAZAPINE
     Dosage: AT NIGHT
     Route: 048
  5. LYRICA [Suspect]
     Active Substance: PREGABALIN
     Dosage: TWICE DAILY

REACTIONS (7)
  - Discomfort [Unknown]
  - Musculoskeletal pain [Unknown]
  - Back pain [Unknown]
  - Neck pain [Unknown]
  - Hypoaesthesia [Unknown]
  - Muscle tightness [Unknown]
  - Paraesthesia [Unknown]
